FAERS Safety Report 12957066 (Version 1)
Quarter: 2016Q4

REPORT INFORMATION
  Report Type: Spontaneous
  Country: None (occurrence: TR)
  Receive Date: 20161118
  Receipt Date: 20161118
  Transmission Date: 20170207
  Serious: Yes (Death, Other)
  Sender: FDA-Public Use
  Company Number: TR-MERZ NORTH AMERICA, INC.-16MRZ-00663

PATIENT
  Age: 80 Year
  Sex: Female

DRUGS (1)
  1. XEOMIN [Suspect]
     Active Substance: INCOBOTULINUMTOXINA
     Indication: OROMANDIBULAR DYSTONIA
     Dosage: 10 IU, EVERY 3 MONTHS

REACTIONS (9)
  - Asthenia [Fatal]
  - Myasthenia gravis [Fatal]
  - Dysphagia [Fatal]
  - Eye disorder [Fatal]
  - Diplopia [Fatal]
  - Eyelid ptosis [Fatal]
  - Off label use [Fatal]
  - Speech disorder [Fatal]
  - Dyspnoea [Fatal]
